FAERS Safety Report 4607945-8 (Version None)
Quarter: 2005Q1

REPORT INFORMATION
  Report Type: 
  Country: None (occurrence: None)
  Receive Date: 20050228
  Receipt Date: 20041105
  Transmission Date: 20050727
  Serious: No
  Sender: FDA-Public Use
  Company Number: FABR-10864

PATIENT
  Age: 28 Year
  Sex: Male
  Weight: 77 kg

DRUGS (10)
  1. FABRAZYME [Suspect]
     Indication: FABRY'S DISEASE
     Dosage: 75 MG Q2WKS IV
     Route: 042
     Dates: start: 20040611
  2. LISINOPRIL [Concomitant]
  3. TYLENOL (CAPLET) [Concomitant]
  4. VICODEN [Concomitant]
  5. PROTONIX [Concomitant]
  6. LEVID [Concomitant]
  7. ALLEGRA-D [Concomitant]
  8. HYDROXYZINE [Concomitant]
  9. ACETAMINOPHEN [Concomitant]
  10. REGLAN [Concomitant]

REACTIONS (11)
  - ABDOMINAL PAIN [None]
  - CHEST DISCOMFORT [None]
  - CHILLS [None]
  - DYSPNOEA [None]
  - EAR INFECTION [None]
  - HYPERTENSION [None]
  - MYALGIA [None]
  - NAUSEA [None]
  - SINUSITIS [None]
  - TACHYCARDIA [None]
  - UPPER RESPIRATORY TRACT INFECTION [None]
